FAERS Safety Report 15898497 (Version 1)
Quarter: 2019Q1

REPORT INFORMATION
  Report Type: Spontaneous
  Country: FR (occurrence: FR)
  Receive Date: 20190201
  Receipt Date: 20190201
  Transmission Date: 20190417
  Serious: Yes (Hospitalization)
  Sender: FDA-Public Use
  Company Number: FR-ACCORD-104616

PATIENT
  Age: 62 Year
  Sex: Male
  Weight: 103.2 kg

DRUGS (8)
  1. ALPRAZOLAM MYLAN [Concomitant]
     Active Substance: ALPRAZOLAM
  2. SOLUPRED [Concomitant]
     Dosage: STRENGTH: 20 MG
     Route: 048
  3. INNOHEP [Concomitant]
     Active Substance: TINZAPARIN SODIUM
  4. NOVORAPID [Concomitant]
     Active Substance: INSULIN ASPART
     Dosage: STRENGTH: 100 U/ML
  5. ETOPOPHOS [Suspect]
     Active Substance: ETOPOSIDE PHOSPHATE
     Indication: SMALL CELL LUNG CANCER
     Dosage: STRENGTH: 100 MG
     Route: 042
     Dates: start: 20181024, end: 20181026
  6. CARBOPLATIN. [Suspect]
     Active Substance: CARBOPLATIN
     Indication: SMALL CELL LUNG CANCER
     Route: 042
     Dates: start: 20181024, end: 20181024
  7. TOUJEO [Concomitant]
     Active Substance: INSULIN GLARGINE
     Dosage: STRENGTH: 300 UNITS / ML
  8. ATENOLOL ARROW [Concomitant]
     Active Substance: ATENOLOL

REACTIONS (2)
  - Septic shock [Not Recovered/Not Resolved]
  - Bone marrow failure [Recovering/Resolving]

NARRATIVE: CASE EVENT DATE: 20181101
